FAERS Safety Report 24791555 (Version 2)
Quarter: 2025Q2

REPORT INFORMATION
  Report Type: Spontaneous
  Country: US (occurrence: US)
  Receive Date: 20241231
  Receipt Date: 20250515
  Transmission Date: 20250717
  Serious: No
  Sender: SANOFI AVENTIS
  Company Number: US-SA-2024SA384108

PATIENT
  Age: 35 Year
  Sex: Female
  Weight: 90.91 kg

DRUGS (1)
  1. CERDELGA [Suspect]
     Active Substance: ELIGLUSTAT
     Indication: Gaucher^s disease
     Dosage: 84 MG, BID
     Route: 048
     Dates: start: 201908

REACTIONS (5)
  - Heart rate decreased [Recovered/Resolved]
  - Weight decreased [Not Recovered/Not Resolved]
  - Fall [Unknown]
  - Contusion [Unknown]
  - Concussion [Unknown]

NARRATIVE: CASE EVENT DATE: 20241218
